FAERS Safety Report 5638320-5 (Version None)
Quarter: 2008Q1

REPORT INFORMATION
  Report Type: 
  Country: None (occurrence: None)
  Receive Date: 20080222
  Receipt Date: 20080212
  Transmission Date: 20080703
  Serious: Yes (Other)
  Sender: FDA-Public Use
  Company Number: 2008AL000800

PATIENT
  Age: 73 Year
  Sex: Female

DRUGS (2)
  1. DIAZEPAM [Suspect]
     Indication: EPILEPSY
     Dosage: 5 MG; IV
     Route: 042
     Dates: start: 20071113, end: 20071113
  2. PRO-EPANUTIN [Concomitant]

REACTIONS (3)
  - NEURODEGENERATIVE DISORDER [None]
  - SNORING [None]
  - SOMNOLENCE [None]
